FAERS Safety Report 19506216 (Version 6)
Quarter: 2022Q1

REPORT INFORMATION
  Report Type: Report from Study
  Country: GB (occurrence: None)
  Receive Date: 20210708
  Receipt Date: 20220316
  Transmission Date: 20220423
  Serious: Yes (Life-Threatening, Hospitalization)
  Sender: FDA-Public Use
  Company Number: GB-ROCHE-2849355

PATIENT
  Age: 71 Year
  Sex: Male
  Weight: 51.7 kg

DRUGS (25)
  1. ATEZOLIZUMAB [Suspect]
     Active Substance: ATEZOLIZUMAB
     Indication: Lung neoplasm malignant
     Route: 041
     Dates: start: 20200715, end: 20210511
  2. DERAZANTINIB [Suspect]
     Active Substance: DERAZANTINIB
     Indication: Lung neoplasm malignant
     Route: 048
     Dates: start: 20200715, end: 20210624
  3. CARBOCYSTEINE [Concomitant]
     Active Substance: CARBOCYSTEINE
     Indication: Lung neoplasm malignant
     Dosage: 1500 MG (375 MG 4 TIMES A DAY)
     Route: 048
     Dates: start: 2018
  4. LAXITOL [Concomitant]
     Indication: Constipation
     Route: 048
     Dates: start: 2019
  5. FERROUS FUMARATE [Concomitant]
     Active Substance: FERROUS FUMARATE
     Indication: Supplementation therapy
     Route: 048
     Dates: start: 2018
  6. BECLOMETHASONE\FORMOTEROL [Concomitant]
     Active Substance: BECLOMETHASONE\FORMOTEROL
     Indication: Asthma
     Dates: start: 2017
  7. ALBUTEROL [Concomitant]
     Active Substance: ALBUTEROL
     Indication: Asthma
     Dates: start: 2020
  8. GABAPENTIN [Concomitant]
     Active Substance: GABAPENTIN
     Indication: Spinal osteoarthritis
     Dates: start: 2010
  9. ACETAMINOPHEN [Concomitant]
     Active Substance: ACETAMINOPHEN
     Indication: Spinal osteoarthritis
     Route: 048
     Dates: start: 2020
  10. LANSOPRAZOLE [Concomitant]
     Active Substance: LANSOPRAZOLE
     Indication: Gastrointestinal disorder prophylaxis
     Route: 048
     Dates: start: 201912
  11. ASPIRIN [Concomitant]
     Active Substance: ASPIRIN
     Indication: Thrombosis prophylaxis
     Route: 048
     Dates: start: 2007
  12. ASPIRIN [Concomitant]
     Active Substance: ASPIRIN
     Indication: Myocardial ischaemia
  13. METFORMIN [Concomitant]
     Active Substance: METFORMIN HYDROCHLORIDE
     Indication: Type 2 diabetes mellitus
     Dates: start: 2011
  14. BISOPROLOL [Concomitant]
     Active Substance: BISOPROLOL
     Indication: Myocardial ischaemia
     Route: 048
     Dates: start: 201409
  15. RAMIPRIL [Concomitant]
     Active Substance: RAMIPRIL
     Indication: Myocardial ischaemia
     Route: 048
     Dates: start: 201409
  16. NITROGLYCERIN [Concomitant]
     Active Substance: NITROGLYCERIN
     Indication: Myocardial ischaemia
     Dates: start: 20200701
  17. BENZYDAMINE [Concomitant]
     Active Substance: BENZYDAMINE
     Indication: Mucosal inflammation
     Dates: start: 20200728
  18. GELCLAIR (UNITED KINGDOM) [Concomitant]
     Indication: Mucosal inflammation
     Route: 048
     Dates: start: 20200930
  19. GELCLAIR (UNITED KINGDOM) [Concomitant]
     Indication: Stomatitis
  20. METOCLOPRAMIDE [Concomitant]
     Active Substance: METOCLOPRAMIDE
     Indication: Nausea
     Route: 048
     Dates: start: 20200728
  21. CHOLESTYRAMINE [Concomitant]
     Active Substance: CHOLESTYRAMINE
     Indication: Prophylaxis
     Dosage: 8 MG EVERT DAY
     Route: 048
     Dates: start: 20200805
  22. MEBEVERINE [Concomitant]
     Active Substance: MEBEVERINE
     Indication: Prophylaxis
     Route: 048
     Dates: start: 20200805
  23. MORPHINE [Concomitant]
     Active Substance: MORPHINE
     Indication: Pain
     Route: 048
     Dates: start: 202002, end: 20200915
  24. MORPHINE [Concomitant]
     Active Substance: MORPHINE
     Route: 048
     Dates: start: 20200915, end: 20200922
  25. MORPHINE [Concomitant]
     Active Substance: MORPHINE
     Route: 048
     Dates: start: 20200922

REACTIONS (1)
  - Hypercalcaemia of malignancy [Not Recovered/Not Resolved]

NARRATIVE: CASE EVENT DATE: 20210530
